FAERS Safety Report 14384108 (Version 1)
Quarter: 2018Q1

REPORT INFORMATION
  Report Type: Spontaneous
  Country: US (occurrence: US)
  Receive Date: 20180115
  Receipt Date: 20180115
  Transmission Date: 20180509
  Serious: No
  Sender: FDA-Public Use
  Company Number: US-PFIZER INC-2018016134

PATIENT
  Age: 67 Year
  Sex: Female

DRUGS (2)
  1. RAPAMUNE [Suspect]
     Active Substance: SIROLIMUS
     Dosage: 1 TAB
  2. RAPAMUNE [Suspect]
     Active Substance: SIROLIMUS
     Dosage: 2 TABS

REACTIONS (1)
  - Drug level increased [Unknown]
